FAERS Safety Report 9652609 (Version 3)
Quarter: 2013Q4

REPORT INFORMATION
  Report Type: Spontaneous
  Country: IT (occurrence: IT)
  Receive Date: 20131029
  Receipt Date: 20131112
  Transmission Date: 20140711
  Serious: Yes (Hospitalization)
  Sender: FDA-Public Use
  Company Number: IT-TEVA-439489ISR

PATIENT
  Age: 39 Year
  Sex: Female

DRUGS (6)
  1. DIAZEPAM [Suspect]
     Dosage: 20 ML DAILY;
     Route: 048
     Dates: start: 20130909, end: 20130909
  2. SEROQUEL 300MG [Suspect]
     Dosage: 9 DOSAGE FORMS DAILY;
     Route: 048
     Dates: start: 20130909, end: 20130909
  3. FELISON 30MG [Suspect]
     Dosage: 12 DOSAGE FORMS DAILY;
     Route: 048
     Dates: start: 20130909, end: 20130909
  4. TRITTICO [Concomitant]
  5. TOPAMAX [Concomitant]
  6. VENLAFAXINA [Concomitant]

REACTIONS (4)
  - Sopor [Recovered/Resolved]
  - Long QT syndrome [Recovered/Resolved]
  - Drug abuse [Recovered/Resolved]
  - Intentional self-injury [Recovered/Resolved]
